FAERS Safety Report 20430316 (Version 1)
Quarter: 2022Q1

REPORT INFORMATION
  Report Type: Report from Study
  Country: FR (occurrence: FR)
  Receive Date: 20220204
  Receipt Date: 20220204
  Transmission Date: 20220423
  Serious: Yes (Hospitalization, Other)
  Sender: FDA-Public Use
  Company Number: FR-SERVIER-S20005851

PATIENT

DRUGS (7)
  1. PEGASPARGASE [Suspect]
     Active Substance: PEGASPARGASE
     Indication: Acute lymphocytic leukaemia
     Dosage: 1815 IU ON D12 AND D26
     Route: 042
     Dates: start: 20200428, end: 20200512
  2. PREDNISOLONE [Suspect]
     Active Substance: PREDNISOLONE
     Indication: Acute lymphocytic leukaemia
     Dosage: 90 MG D8-D28
     Route: 048
     Dates: start: 20200424, end: 20200514
  3. METHYLPREDNISOLONE [Suspect]
     Active Substance: METHYLPREDNISOLONE
     Indication: Acute lymphocytic leukaemia
     Dosage: 15 G ON D13 AND D24
     Route: 037
     Dates: start: 20200424, end: 20200511
  4. TN UNSPECIFIED [Concomitant]
     Indication: Acute lymphocytic leukaemia
     Dosage: 2 MG ON D8, D15, D22, D29
     Route: 042
     Dates: start: 20200424, end: 20200515
  5. TN UNSPECIFIED [Concomitant]
     Indication: Acute lymphocytic leukaemia
     Dosage: 45 MG ON D8, D15, D22, D29
     Route: 042
     Dates: start: 20200424, end: 20200515
  6. TN UNSPECIFIED [Concomitant]
     Indication: Acute lymphocytic leukaemia
     Dosage: 15 G ON D13 AND D24
     Route: 037
     Dates: start: 20200424, end: 20200511
  7. TN UNSPECIFIED [Concomitant]
     Indication: Acute lymphocytic leukaemia
     Dosage: 30 MG ON D13 AND D24
     Route: 037
     Dates: start: 20200424, end: 20200511

REACTIONS (2)
  - Steroid diabetes [Not Recovered/Not Resolved]
  - Hepatic cytolysis [Not Recovered/Not Resolved]

NARRATIVE: CASE EVENT DATE: 20200430
